FAERS Safety Report 9057636 (Version 5)
Quarter: 2013Q2

REPORT INFORMATION
  Report Type: Spontaneous
  Country: US (occurrence: US)
  Receive Date: 20130204
  Receipt Date: 20130528
  Transmission Date: 20140414
  Serious: Yes (Other)
  Sender: FDA-Public Use
  Company Number: US-PFIZER INC-2013044780

PATIENT
  Age: 41 Year
  Sex: Male
  Weight: 120 kg

DRUGS (7)
  1. LYRICA [Suspect]
     Indication: FIBROMYALGIA
     Dosage: 100 MG, 4X/DAY
     Route: 048
     Dates: start: 2009
  2. LYRICA [Suspect]
     Dosage: 100 MG, 4X/DAY
     Route: 048
     Dates: start: 201204, end: 201303
  3. IBUPROFEN [Concomitant]
     Indication: FIBROMYALGIA
     Dosage: 800 MG, 3X/DAY
  4. IBUPROFEN [Concomitant]
     Indication: OSTEOARTHRITIS
  5. NORCO [Concomitant]
     Indication: FIBROMYALGIA
     Dosage: 10/325MG 4-6 TIMES A DAY
  6. NORCO [Concomitant]
     Indication: BACK PAIN
  7. NORCO [Concomitant]
     Indication: OSTEOARTHRITIS

REACTIONS (4)
  - Gallbladder disorder [Recovered/Resolved]
  - Withdrawal syndrome [Unknown]
  - Fibromyalgia [Unknown]
  - Drug ineffective [Unknown]
